FAERS Safety Report 10862493 (Version 1)
Quarter: 2015Q1

REPORT INFORMATION
  Report Type: Spontaneous
  Country: US (occurrence: None)
  Receive Date: 20150219
  Receipt Date: 20150219
  Transmission Date: 20150721
  Serious: Yes (Hospitalization)
  Sender: FDA-Public Use
  Company Number: JK1617 (27)

PATIENT
  Age: 51 Year
  Sex: Female

DRUGS (4)
  1. THERAFLU NOS [Concomitant]
     Active Substance: ACETAMINOPHEN AND OR DEXTROMETHORPHAN AND OR DIPHENHYDRAMINE AND OR GUAIFENESIN AND OR PHENYLEPHRINE AND OR PSEUDOEPHEDRINE
  2. MEDFORMIN [Concomitant]
  3. RICOLA ORIGINAL HERB COUGH DROP [Suspect]
     Active Substance: HERBALS\MENTHOL
     Indication: COUGH
     Route: 048
     Dates: start: 20150210
  4. RICOLA ORIGINAL HERB COUGH DROP [Suspect]
     Active Substance: HERBALS\MENTHOL
     Indication: OROPHARYNGEAL PAIN
     Route: 048
     Dates: start: 20150210

REACTIONS (6)
  - Loss of consciousness [None]
  - Unresponsive to stimuli [None]
  - Oedema [None]
  - Paraesthesia oral [None]
  - Feeling abnormal [None]
  - Paraesthesia [None]

NARRATIVE: CASE EVENT DATE: 20150210
